FAERS Safety Report 9368961 (Version 1)
Quarter: 2013Q2

REPORT INFORMATION
  Report Type: Spontaneous
  Country: GB (occurrence: None)
  Receive Date: 20130621
  Receipt Date: 20130621
  Transmission Date: 20140414
  Serious: Yes (Hospitalization, Other)
  Sender: FDA-Public Use
  Company Number: KAD201306-000719

PATIENT
  Age: 34 Year
  Sex: Female

DRUGS (3)
  1. RIBAVIRIN [Suspect]
     Indication: VIRAL HEPATITIS CARRIER
     Dosage: ORAL
     Route: 048
     Dates: start: 20130101, end: 20130301
  2. TELAPREVIR [Suspect]
     Indication: HEPATITIS C
     Dates: start: 20130101, end: 20130301
  3. TEMAZEPAM (TEMAZEPAM) [Concomitant]

REACTIONS (1)
  - Drug reaction with eosinophilia and systemic symptoms [None]
